FAERS Safety Report 20373066 (Version 1)
Quarter: 2022Q1

REPORT INFORMATION
  Report Type: Spontaneous
  Country: GB (occurrence: GB)
  Receive Date: 20220125
  Receipt Date: 20220125
  Transmission Date: 20220423
  Serious: Yes (Hospitalization, Disabling, Other)
  Sender: FDA-Public Use
  Company Number: None

PATIENT

DRUGS (6)
  1. PREDNISOLONE [Suspect]
     Active Substance: PREDNISOLONE
     Indication: Asthma prophylaxis
     Dosage: 1 DOSAGE FORM (6 IN A DAY)
     Route: 048
     Dates: start: 20211227
  2. PREDNISOLONE [Suspect]
     Active Substance: PREDNISOLONE
     Dosage: 1 DOSAGE FORM (8 IN A DAY)
     Route: 048
     Dates: start: 20211227, end: 20220107
  3. AMOXICILLIN\CLAVULANATE POTASSIUM [Suspect]
     Active Substance: AMOXICILLIN\CLAVULANATE POTASSIUM
     Indication: Asthma
     Dosage: 1 DOSAGE FORM, TID
     Route: 048
     Dates: start: 20211227
  4. ESTROGENS, CONJUGATED AND MEDROXYPROGESTERONE ACETATE [Concomitant]
     Active Substance: ESTROGENS, CONJUGATED\MEDROXYPROGESTERONE ACETATE
     Dosage: LOW DOSE.
  5. BECLOMETHASONE\FORMOTEROL [Concomitant]
     Active Substance: BECLOMETHASONE\FORMOTEROL
  6. ALBUTEROL [Concomitant]
     Active Substance: ALBUTEROL

REACTIONS (4)
  - Halo vision [Unknown]
  - Diplopia [Unknown]
  - Vision blurred [Unknown]
  - Cataract [Unknown]

NARRATIVE: CASE EVENT DATE: 20211229
